FAERS Safety Report 5731235-3 (Version None)
Quarter: 2008Q2

REPORT INFORMATION
  Report Type: 
  Country: None (occurrence: None)
  Receive Date: 20080507
  Receipt Date: 20080411
  Transmission Date: 20081010
  Serious: No
  Sender: FDA-Public Use
  Company Number: US-BOEHRINGER INGELHEIM GMBH, GERMANY-2008-BP-03636BP

PATIENT
  Sex: Male

DRUGS (10)
  1. SPIRIVA [Suspect]
     Indication: CHRONIC OBSTRUCTIVE PULMONARY DISEASE
     Route: 055
     Dates: start: 20071201
  2. SPIRIVA [Suspect]
     Indication: ASTHMA
  3. ASPIRIN [Concomitant]
  4. DOXAZOSIN MESYLATE [Concomitant]
  5. LEBETAL [Concomitant]
  6. LIPITOR [Concomitant]
  7. PLAVIC [Concomitant]
  8. GLYBURIDE [Concomitant]
  9. TRENTAL [Concomitant]
  10. ALBUTEROL [Concomitant]

REACTIONS (4)
  - ARTHRALGIA [None]
  - DRY EYE [None]
  - LACRIMATION INCREASED [None]
  - NIGHTMARE [None]
